FAERS Safety Report 5390572-5 (Version None)
Quarter: 2007Q3

REPORT INFORMATION
  Report Type: 
  Country: None (occurrence: None)
  Receive Date: 20070718
  Receipt Date: 20061003
  Transmission Date: 20080115
  Serious: No
  Sender: FDA-Public Use
  Company Number: US-KINGPHARMUSA00001-K200601265

PATIENT

DRUGS (2)
  1. LEVOXYL [Suspect]
     Indication: HYPOTHYROIDISM
     Dosage: 50 MCG, QD
     Route: 048
     Dates: start: 20030101
  2. CORTEF /00028601/ [Concomitant]
     Indication: DIABETIC NEUROPATHIC ULCER
     Dosage: .25 MG, QD AM
     Route: 048
     Dates: start: 20020101

REACTIONS (5)
  - BODY TEMPERATURE INCREASED [None]
  - INSOMNIA [None]
  - LETHARGY [None]
  - PHOTOSENSITIVITY REACTION [None]
  - PSYCHOMOTOR HYPERACTIVITY [None]
